FAERS Safety Report 4953160-8 (Version None)
Quarter: 2006Q1

REPORT INFORMATION
  Report Type: 
  Country: None (occurrence: None)
  Receive Date: 20060127
  Receipt Date: 20050513
  Transmission Date: 20060701
  Serious: Yes (Hospitalization)
  Sender: FDA-Public Use
  Company Number: 05-05-0850

PATIENT
  Age: 46 Year
  Sex: Male

DRUGS (4)
  1. CLOZAPINE [Suspect]
     Indication: SCHIZOPHRENIA
     Dosage: 100MG QAM, ORAL
     Route: 048
     Dates: start: 19991101
  2. DEPAKOTE [Concomitant]
  3. LEXAPRO [Concomitant]
  4. COGENTIN [Concomitant]

REACTIONS (2)
  - DELUSION [None]
  - SUICIDAL IDEATION [None]
